FAERS Safety Report 6082889-6 (Version None)
Quarter: 2009Q1

REPORT INFORMATION
  Report Type: 
  Country: None (occurrence: None)
  Receive Date: 20090218
  Receipt Date: 20090211
  Transmission Date: 20090719
  Serious: Yes (Other)
  Sender: FDA-Public Use
  Company Number: US-WYE-H02733008

PATIENT
  Age: 59 Year
  Sex: Female

DRUGS (4)
  1. RAPAMUNE [Suspect]
     Indication: WEGENER'S GRANULOMATOSIS
     Dosage: MAXIMUM DOSES OF 2 TO 4 MG/DAILY
     Route: 048
  2. AZATHIOPRINE [Concomitant]
     Dosage: DOSE AND FREQUENCY NOT SPECIFIED
     Route: 065
  3. PREDNISONE [Concomitant]
     Dosage: 20 MG/DAY (PRIOR TO THE START OF RAPAMYCIN)
     Route: 065
  4. PREDNISONE [Concomitant]
     Dosage: 12.5 MG/DAY (6 MONTHS AFTER THE START OF RAPAMYCIN)
     Route: 065

REACTIONS (1)
  - MALIGNANT FIBROUS HISTIOCYTOMA [None]
